FAERS Safety Report 5321471-2 (Version None)
Quarter: 2007Q2

REPORT INFORMATION
  Report Type: 
  Country: None (occurrence: None)
  Receive Date: 20070510
  Receipt Date: 20070507
  Transmission Date: 20071010
  Serious: Yes (Hospitalization)
  Sender: FDA-Public Use
  Company Number: B0469939A

PATIENT
  Age: 16 Month
  Sex: Male
  Weight: 12 kg

DRUGS (1)
  1. ZOVIRAX [Suspect]
     Dosage: 100MG TWICE PER DAY
     Route: 048
     Dates: start: 20070501, end: 20070501

REACTIONS (2)
  - CONFUSIONAL STATE [None]
  - FEELING DRUNK [None]
